FAERS Safety Report 10236752 (Version 2)
Quarter: 2014Q3

REPORT INFORMATION
  Report Type: Spontaneous
  Country: JP (occurrence: JP)
  Receive Date: 20140613
  Receipt Date: 20140918
  Transmission Date: 20150326
  Serious: Yes (Hospitalization)
  Sender: FDA-Public Use
  Company Number: JP-GLAXOSMITHKLINE-B0988140A

PATIENT
  Age: 58 Year
  Sex: Male

DRUGS (2)
  1. DEPAKENE [Concomitant]
     Active Substance: VALPROIC ACID
     Indication: EPILEPSY
     Dosage: 1G THREE TIMES PER DAY
     Route: 048
     Dates: end: 20140417
  2. LAMICTAL [Suspect]
     Active Substance: LAMOTRIGINE
     Indication: EPILEPSY
     Dosage: 25MG PER DAY
     Route: 048
     Dates: start: 20130116, end: 20140417

REACTIONS (12)
  - Muscle abscess [Unknown]
  - Device related infection [Unknown]
  - Pyelonephritis [Unknown]
  - Rash [Recovering/Resolving]
  - Drug eruption [Recovering/Resolving]
  - Hyperglycaemia [Unknown]
  - Subcutaneous abscess [Unknown]
  - Bacterial sepsis [Unknown]
  - Enanthema [Recovered/Resolved]
  - Blood albumin decreased [Unknown]
  - Pleural effusion [Unknown]
  - Drug reaction with eosinophilia and systemic symptoms [Recovering/Resolving]

NARRATIVE: CASE EVENT DATE: 20140417
